FAERS Safety Report 7110272-0 (Version None)
Quarter: 2010Q4

REPORT INFORMATION
  Report Type: 
  Country: None (occurrence: None)
  Receive Date: 20101117
  Receipt Date: 20101117
  Transmission Date: 20110411
  Serious: Yes (Other)
  Sender: FDA-Public Use
  Company Number: None

PATIENT
  Sex: Female
  Weight: 74.8435 kg

DRUGS (1)
  1. ZETIA [Suspect]
     Dosage: 10 MG. 1 A DAY
     Dates: start: 20060101, end: 20070101

REACTIONS (2)
  - NO THERAPEUTIC RESPONSE [None]
  - RASH PRURITIC [None]
